FAERS Safety Report 6911760-X (Version None)
Quarter: 2010Q3

REPORT INFORMATION
  Report Type: 
  Country: None (occurrence: None)
  Receive Date: 20100806
  Receipt Date: 20100730
  Transmission Date: 20110219
  Serious: Yes (Other)
  Sender: FDA-Public Use
  Company Number: GB-GILEAD-2010-0030805

PATIENT
  Sex: Male

DRUGS (4)
  1. TRUVADA [Suspect]
     Indication: HIV INFECTION
  2. FOSAMPRENAVIR [Concomitant]
  3. RALTEGRAVIR [Concomitant]
  4. RITONAVIR [Concomitant]

REACTIONS (1)
  - BONE PAIN [None]
